FAERS Safety Report 6708800-X (Version None)
Quarter: 2010Q2

REPORT INFORMATION
  Report Type: 
  Country: None (occurrence: None)
  Receive Date: 20100504
  Receipt Date: 20100426
  Transmission Date: 20101027
  Serious: No
  Sender: FDA-Public Use
  Company Number: US-BIOGENIDEC-2010BI014367

PATIENT
  Sex: Female

DRUGS (2)
  1. TYSABRI [Suspect]
     Indication: MULTIPLE SCLEROSIS
     Route: 042
     Dates: start: 20091125, end: 20100201
  2. TYSABRI [Suspect]
     Route: 042
     Dates: start: 20100419

REACTIONS (2)
  - DIABETES MELLITUS [None]
  - HYPERTENSION [None]
